FAERS Safety Report 7509811-7 (Version None)
Quarter: 2011Q2

REPORT INFORMATION
  Report Type: 
  Country: None (occurrence: None)
  Receive Date: 20110527
  Receipt Date: 20110523
  Transmission Date: 20111010
  Serious: Yes (Hospitalization)
  Sender: FDA-Public Use
  Company Number: A0915174A

PATIENT
  Age: 63 Year
  Sex: Male

DRUGS (1)
  1. AVANDIA [Suspect]
     Route: 048
     Dates: start: 20030429, end: 20070622

REACTIONS (3)
  - WEIGHT DECREASED [None]
  - CEREBROVASCULAR ACCIDENT [None]
  - CARDIAC DISORDER [None]
